FAERS Safety Report 5988137-7 (Version None)
Quarter: 2008Q4

REPORT INFORMATION
  Report Type: 
  Country: None (occurrence: None)
  Receive Date: 20081208
  Receipt Date: 20081208
  Transmission Date: 20090506
  Serious: Yes (Hospitalization)
  Sender: FDA-Public Use
  Company Number: None

PATIENT
  Sex: Male
  Weight: 82.2 kg

DRUGS (19)
  1. OXALIPLATIN [Suspect]
     Indication: OESOPHAGEAL CARCINOMA
     Dosage: 250 MG ONCE IV
     Route: 042
     Dates: start: 20081107, end: 20081128
  2. EPIRUBICIN [Suspect]
     Indication: OESOPHAGEAL CARCINOMA
     Dosage: 95 MG ONCE IV
     Route: 042
     Dates: start: 20081107, end: 20081128
  3. FLUOROURACIL [Suspect]
     Indication: OESOPHAGEAL CARCINOMA
     Dosage: 2,660 MG OVER 7 DAYS CONTINUOUS IV
     Route: 042
     Dates: start: 20081107
  4. FLUOROURACIL [Suspect]
     Indication: OESOPHAGEAL CARCINOMA
     Dosage: 2,660 MG OVER 7 DAYS CONTINUOUS IV
     Route: 042
     Dates: start: 20081114
  5. FLUOROURACIL [Suspect]
     Indication: OESOPHAGEAL CARCINOMA
     Dosage: 2,660 MG OVER 7 DAYS CONTINUOUS IV
     Route: 042
     Dates: start: 20081121
  6. FLUOROURACIL [Suspect]
     Indication: OESOPHAGEAL CARCINOMA
     Dosage: 2,660MG OVER 7 DAYS CONTINUOUS IV
     Route: 042
     Dates: start: 20081128
  7. DEXAMETHASONE [Suspect]
     Indication: ANTIEMETIC SUPPORTIVE CARE
     Dosage: 10 MG ONCE IV
     Route: 042
     Dates: start: 20081107, end: 20081128
  8. DIPHENHYDRAMINE HCL [Suspect]
     Indication: ANTIEMETIC SUPPORTIVE CARE
     Dosage: 25 MG ONCE IV
     Route: 042
     Dates: start: 20081107, end: 20081128
  9. COMPAZINE [Suspect]
     Indication: ANTIEMETIC SUPPORTIVE CARE
     Dosage: 10 MG ONCE PO
     Route: 048
     Dates: start: 20081107
  10. ATENOLOL [Suspect]
     Indication: HYPERTENSION
     Dosage: 50 MG DAILY PO
     Route: 048
  11. ADVAIR DISKUS 250/50 [Suspect]
     Dosage: 0.0167 INHALATION TWICE DAILY INHAL
     Route: 055
  12. SPIRIVA [Suspect]
     Dosage: 18 MCG DAILY INHALED
     Route: 055
  13. AVODART [Suspect]
     Indication: BENIGN PROSTATIC HYPERPLASIA
     Dosage: 0.5 MG DAILY PO
     Route: 048
  14. FLOMAX [Suspect]
     Indication: BENIGN PROSTATIC HYPERPLASIA
     Dosage: 0.4 MG 2 TABS QHS PO
     Route: 048
  15. GEMFIBROZIL [Suspect]
     Indication: HYPERLIPIDAEMIA
     Dosage: 600 MG TWICE DAILY PO
     Route: 048
  16. ZOCOR [Suspect]
     Indication: HYPERLIPIDAEMIA
     Dosage: 20 MG QHS PO
     Route: 048
  17. LISINOPRIL [Suspect]
     Indication: HYPERTENSION
     Dosage: 10 MG DAILY PO
     Route: 048
  18. FERREX [Suspect]
     Indication: MINERAL SUPPLEMENTATION
     Dosage: 150 MG DAILY PO
     Route: 048
  19. COMPAZINE [Suspect]
     Indication: ANTIEMETIC SUPPORTIVE CARE
     Dosage: 10 MG Q 6 HOURS PRN PO
     Route: 048
     Dates: start: 20081007

REACTIONS (5)
  - CHILLS [None]
  - FLUSHING [None]
  - NAUSEA [None]
  - PYREXIA [None]
  - VOMITING [None]
